FAERS Safety Report 22325057 (Version 1)
Quarter: 2023Q2

REPORT INFORMATION
  Report Type: Spontaneous
  Country: US (occurrence: None)
  Receive Date: 20230513
  Receipt Date: 20230513
  Transmission Date: 20230722
  Serious: No
  Sender: FDA-Public Use
  Company Number: None

PATIENT
  Age: 39 Year
  Sex: Male
  Weight: 84.15 kg

DRUGS (6)
  1. TIZANIDINE [Suspect]
     Active Substance: TIZANIDINE
     Indication: Temporomandibular joint syndrome
     Dosage: OTHER QUANTITY : 360 TABLET(S);?FREQUENCY : 4 TIMES A DAY;?
     Route: 048
  2. TYLENOL [Concomitant]
     Active Substance: ACETAMINOPHEN
  3. PANTOPRAZOLE [Concomitant]
     Active Substance: PANTOPRAZOLE
  4. VITAMIN D3 [Concomitant]
     Active Substance: CHOLECALCIFEROL
  5. MAGNESIUM [Concomitant]
     Active Substance: MAGNESIUM
  6. VALERIAN [Concomitant]
     Active Substance: VALERIAN

REACTIONS (5)
  - Product substitution issue [None]
  - Drug ineffective [None]
  - Palpitations [None]
  - Feeling jittery [None]
  - Irritability [None]

NARRATIVE: CASE EVENT DATE: 20230101
